FAERS Safety Report 4559735-2 (Version None)
Quarter: 2005Q1

REPORT INFORMATION
  Report Type: 
  Country: None (occurrence: None)
  Receive Date: 20050124
  Receipt Date: 20040929
  Transmission Date: 20050727
  Serious: Yes (Life-Threatening, Hospitalization, Other)
  Sender: FDA-Public Use
  Company Number: AU-MERCK-0409AUS00106

PATIENT
  Age: 50 Year
  Sex: Male
  Weight: 80 kg

DRUGS (9)
  1. EZETIMIBE [Suspect]
     Indication: HYPERTENSION
     Route: 048
     Dates: start: 20040801, end: 20040927
  2. EZETIMIBE [Suspect]
     Indication: CORONARY ARTERY DISEASE
     Route: 048
     Dates: start: 20040801, end: 20040927
  3. CLOPIDOGREL BISULFATE [Concomitant]
     Route: 065
  4. ATORVASTATIN CALCIUM [Suspect]
     Route: 048
     Dates: start: 20030101, end: 20040927
  5. PERINDOPRIL ERBUMINE [Concomitant]
     Route: 065
  6. CARVEDILOL [Concomitant]
     Route: 065
     Dates: start: 20030101
  7. [COMPOSITION UNSPECIFIED] [Concomitant]
     Route: 065
  8. FUROSEMIDE SODIUM [Concomitant]
     Indication: ISCHAEMIA
     Route: 065
     Dates: start: 20030101
  9. FUROSEMIDE SODIUM [Concomitant]
     Indication: LEFT VENTRICULAR FAILURE
     Route: 065
     Dates: start: 20030101

REACTIONS (10)
  - ANAEMIA [None]
  - CARDIAC OUTPUT DECREASED [None]
  - FEELING ABNORMAL [None]
  - HEPATITIS ACUTE [None]
  - HEPATOMEGALY [None]
  - ISCHAEMIA [None]
  - LIVER TENDERNESS [None]
  - LOW CARDIAC OUTPUT SYNDROME [None]
  - PERIPHERAL ISCHAEMIA [None]
  - RENAL FAILURE [None]
